FAERS Safety Report 5596485-8 (Version None)
Quarter: 2008Q1

REPORT INFORMATION
  Report Type: 
  Country: None (occurrence: None)
  Receive Date: 20080118
  Receipt Date: 20080108
  Transmission Date: 20080703
  Serious: Yes (Other)
  Sender: FDA-Public Use
  Company Number: US-PFIZER INC-2007102385

PATIENT
  Sex: Male
  Weight: 79.4 kg

DRUGS (2)
  1. DILANTIN [Suspect]
  2. TEGRETOL [Concomitant]

REACTIONS (1)
  - CONVULSION [None]
